FAERS Safety Report 6006846-0 (Version None)
Quarter: 2008Q4

REPORT INFORMATION
  Report Type: 
  Country: None (occurrence: None)
  Receive Date: 20081217
  Receipt Date: 20071031
  Transmission Date: 20090506
  Serious: No
  Sender: FDA-Public Use
  Company Number: US-ASTRAZENECA-2007UW25314

PATIENT
  Age: 78 Year
  Sex: Male
  Weight: 73.5 kg

DRUGS (5)
  1. CRESTOR [Suspect]
     Indication: BLOOD CHOLESTEROL INCREASED
     Route: 048
  2. CRESTOR [Suspect]
     Route: 048
  3. COUMADIN [Concomitant]
  4. CARDIZEM [Concomitant]
  5. ALTACE [Concomitant]

REACTIONS (1)
  - FLUSHING [None]
